FAERS Safety Report 5056051-X (Version None)
Quarter: 2006Q3

REPORT INFORMATION
  Report Type: 
  Country: None (occurrence: None)
  Receive Date: 20060717
  Receipt Date: 20060717
  Transmission Date: 20061208
  Serious: Yes (Other)
  Sender: FDA-Public Use
  Company Number: None

PATIENT
  Sex: Male
  Weight: 77.3 kg

DRUGS (4)
  1. IRESSA [Suspect]
     Indication: METASTATIC NEOPLASM
     Dosage: 250 MG   DAILY   ORAL
     Route: 048
     Dates: start: 20060621, end: 20060630
  2. VITAMIN [Concomitant]
  3. MINERAL [Concomitant]
  4. HERBAL [Concomitant]

REACTIONS (6)
  - BLINDNESS TRANSIENT [None]
  - BLINDNESS UNILATERAL [None]
  - NIGHT SWEATS [None]
  - PYREXIA [None]
  - RETINAL ARTERY OCCLUSION [None]
  - VISUAL DISTURBANCE [None]
